FAERS Safety Report 24570048 (Version 7)
Quarter: 2025Q4

REPORT INFORMATION
  Report Type: Spontaneous
  Country: US (occurrence: US)
  Receive Date: 20241031
  Receipt Date: 20251126
  Transmission Date: 20260118
  Serious: No
  Sender: PFIZER
  Company Number: US-PFIZER INC-PV202400043195

PATIENT
  Age: 61 Year
  Sex: Female

DRUGS (2)
  1. XELJANZ XR [Suspect]
     Active Substance: TOFACITINIB CITRATE
     Indication: Rheumatoid arthritis
     Dosage: 11 MG
  2. XELJANZ XR [Suspect]
     Active Substance: TOFACITINIB CITRATE
     Indication: Malassezia infection

REACTIONS (6)
  - Herpes zoster [Unknown]
  - Limb injury [Not Recovered/Not Resolved]
  - Anxiety [Unknown]
  - Frustration tolerance decreased [Unknown]
  - Sensitivity to weather change [Unknown]
  - Bladder disorder [Unknown]

NARRATIVE: CASE EVENT DATE: 20240101
